FAERS Safety Report 8610565-1 (Version None)
Quarter: 2012Q3

REPORT INFORMATION
  Report Type: 
  Country: None (occurrence: None)
  Receive Date: 20120808
  Receipt Date: 20120727
  Transmission Date: 20120928
  Serious: Yes (Hospitalization)
  Sender: FDA-Public Use
  Company Number: JPI-P-023331

PATIENT
  Age: 57 Year
  Sex: Female

DRUGS (9)
  1. SPIRONOLACTONE [Concomitant]
  2. VITAMIN D [Concomitant]
  3. XYREM (500 MILLIGRAM/MILLILITERS, SOLUTION,) (SODIUM OXYGATE) [Suspect]
     Indication: HYPERTENSION
     Dosage: 4.5 GM (2,25 GM, 2 IN 1 D), ORAL
     Route: 048
     Dates: start: 20120717, end: 20120726
  4. XYREM (500 MILLIGRAM/MILLILITERS, SOLUTION,) (SODIUM OXYGATE) [Suspect]
     Indication: FIBROMYALGIA
     Dosage: 4.5 GM (2,25 GM, 2 IN 1 D), ORAL
     Route: 048
     Dates: start: 20120717, end: 20120726
  5. XYREM (500 MILLIGRAM/MILLILITERS, SOLUTION,) (SODIUM OXYGATE) [Suspect]
     Indication: MENIERE'S DISEASE
     Dosage: 4.5 GM (2,25 GM, 2 IN 1 D), ORAL
     Route: 048
     Dates: start: 20120717, end: 20120726
  6. XYREM (500 MILLIGRAM/MILLILITERS, SOLUTION,) (SODIUM OXYGATE) [Suspect]
     Indication: SLEEP DISORDER
     Dosage: 4.5 GM (2,25 GM, 2 IN 1 D), ORAL
     Route: 048
     Dates: start: 20120717, end: 20120726
  7. XYREM (500 MILLIGRAM/MILLILITERS, SOLUTION,) (SODIUM OXYGATE) [Suspect]
     Indication: SYSTEMIC LUPUS ERYTHEMATOSUS
     Dosage: 4.5 GM (2,25 GM, 2 IN 1 D), ORAL
     Route: 048
     Dates: start: 20120717, end: 20120726
  8. HYDROCHLOROTHIAZIDE [Concomitant]
  9. LOSARTAN POTASSIUM [Concomitant]

REACTIONS (2)
  - MOVEMENT DISORDER [None]
  - DYSPNOEA [None]
